FAERS Safety Report 8902069 (Version 1)
Quarter: 2012Q4

REPORT INFORMATION
  Report Type: 
  Country: IT (occurrence: IT)
  Receive Date: 20121112
  Receipt Date: 20121112
  Transmission Date: 20130627
  Serious: Yes (Hospitalization)
  Sender: FDA-Public Use
  Company Number: PHHY2012IT103673

PATIENT

DRUGS (4)
  1. CICLOSPORIN [Suspect]
     Indication: RENAL TRANSPLANT
  2. CICLOSPORIN [Suspect]
     Indication: IMMUNOSUPPRESSION
  3. STEROIDS NOS [Concomitant]
     Indication: IMMUNOSUPPRESSION
  4. MYCOPHENOLATE MOFETIL [Concomitant]
     Indication: IMMUNOSUPPRESSION

REACTIONS (1)
  - Acute coronary syndrome [Unknown]
